FAERS Safety Report 22048634 (Version 1)
Quarter: 2023Q1

REPORT INFORMATION
  Report Type: Spontaneous
  Country: CN (occurrence: None)
  Receive Date: 20230301
  Receipt Date: 20230301
  Transmission Date: 20230418
  Serious: Yes (Other)
  Sender: FDA-Public Use
  Company Number: 2023A046438

PATIENT
  Age: 15706 Day
  Sex: Female
  Weight: 54 kg

DRUGS (1)
  1. BUDESONIDE [Suspect]
     Active Substance: BUDESONIDE
     Indication: Bronchitis
     Route: 055
     Dates: start: 20230202, end: 20230202

REACTIONS (4)
  - Cardiac flutter [Recovering/Resolving]
  - Fatigue [Unknown]
  - Nausea [Unknown]
  - Vomiting [Recovering/Resolving]

NARRATIVE: CASE EVENT DATE: 20230202
